FAERS Safety Report 15483516 (Version 1)
Quarter: 2018Q4

REPORT INFORMATION
  Report Type: Spontaneous
  Country: US (occurrence: US)
  Receive Date: 20181010
  Receipt Date: 20181010
  Transmission Date: 20190205
  Serious: No
  Sender: FDA-Public Use
  Company Number: US-JNJFOC-20180925667

PATIENT
  Age: 79 Year
  Sex: Female

DRUGS (2)
  1. TRAMADOL HYDROCHLORIDE. [Suspect]
     Active Substance: TRAMADOL HYDROCHLORIDE
     Indication: ARTHRITIS
     Route: 048
     Dates: start: 2018
  2. TRAMADOL HYDROCHLORIDE. [Suspect]
     Active Substance: TRAMADOL HYDROCHLORIDE
     Indication: BREAKTHROUGH PAIN
     Route: 048
     Dates: start: 2018

REACTIONS (1)
  - Drug effect incomplete [Unknown]
